FAERS Safety Report 24444923 (Version 2)
Quarter: 2024Q4

REPORT INFORMATION
  Report Type: Report from Study
  Country: US (occurrence: US)
  Receive Date: 20241016
  Receipt Date: 20241017
  Transmission Date: 20250115
  Serious: No
  Sender: ROCHE
  Company Number: US-ROCHE-2879871

PATIENT
  Age: 41 Year
  Sex: Female

DRUGS (9)
  1. RITUXAN [Suspect]
     Active Substance: RITUXIMAB
     Indication: Multiple sclerosis
     Dosage: EVERY 3-4  MONTHS
     Route: 042
     Dates: start: 20210521
  2. RITUXAN [Suspect]
     Active Substance: RITUXIMAB
     Indication: Stiff person syndrome
  3. RITUXAN [Suspect]
     Active Substance: RITUXIMAB
     Indication: Extrapyramidal disorder
  4. RITUXAN [Suspect]
     Active Substance: RITUXIMAB
     Indication: Multiple sclerosis
     Dosage: 500 MG SINGLE-USE VIAL, END DATE WAS REPORTED AS 19/JUL/2024
     Route: 065
     Dates: start: 20230719
  5. RITUXAN [Suspect]
     Active Substance: RITUXIMAB
     Indication: Stiff person syndrome
  6. GABAPENTIN [Concomitant]
     Active Substance: GABAPENTIN
  7. PAXIL [Concomitant]
     Active Substance: PAROXETINE HYDROCHLORIDE
  8. PLAQUENIL [Concomitant]
     Active Substance: HYDROXYCHLOROQUINE SULFATE
  9. DIAZEPAM [Concomitant]
     Active Substance: DIAZEPAM

REACTIONS (2)
  - Off label use [Unknown]
  - No adverse event [Unknown]
